FAERS Safety Report 6301281-X (Version None)
Quarter: 2009Q3

REPORT INFORMATION
  Report Type: 
  Country: None (occurrence: None)
  Receive Date: 20090805
  Receipt Date: 20090805
  Transmission Date: 20100115
  Serious: Yes (Disabling)
  Sender: FDA-Public Use
  Company Number: None

PATIENT
  Age: 49 Year
  Sex: Female
  Weight: 54.4316 kg

DRUGS (4)
  1. LYRICA [Suspect]
     Indication: BACK PAIN
     Dosage: 75MG SID PO
     Route: 048
     Dates: start: 20080831, end: 20080919
  2. LYRICA [Suspect]
     Indication: INTERVERTEBRAL DISC PROTRUSION
     Dosage: 75MG SID PO
     Route: 048
     Dates: start: 20080831, end: 20080919
  3. ZANAFLEX [Suspect]
     Indication: BACK PAIN
     Dosage: 4MG QID PO
     Route: 048
     Dates: start: 20090715, end: 20090720
  4. ZANAFLEX [Suspect]
     Indication: INTERVERTEBRAL DISC PROTRUSION
     Dosage: 4MG QID PO
     Route: 048
     Dates: start: 20090715, end: 20090720

REACTIONS (15)
  - CEREBROVASCULAR ACCIDENT [None]
  - COGNITIVE DISORDER [None]
  - DIPLOPIA [None]
  - EYE PAIN [None]
  - HEADACHE [None]
  - HYPOAESTHESIA [None]
  - HYPOAESTHESIA FACIAL [None]
  - IMPAIRED WORK ABILITY [None]
  - PARAESTHESIA [None]
  - SENSORIMOTOR DISORDER [None]
  - SPEECH DISORDER [None]
  - THINKING ABNORMAL [None]
  - VIOLENCE-RELATED SYMPTOM [None]
  - VISION BLURRED [None]
  - VISUAL IMPAIRMENT [None]
